FAERS Safety Report 5127376-4 (Version None)
Quarter: 2006Q4

REPORT INFORMATION
  Report Type: 
  Country: None (occurrence: None)
  Receive Date: 20061010
  Receipt Date: 20060927
  Transmission Date: 20070319
  Serious: Yes (Other)
  Sender: FDA-Public Use
  Company Number: GXKR2006JP05596

PATIENT
  Age: 79 Year
  Sex: Male

DRUGS (3)
  1. RIFADIN [Suspect]
     Indication: ERYTHEMA INDURATUM
  2. ISONIAZID [Concomitant]
  3. PYRAZINAMIDE [Concomitant]

REACTIONS (2)
  - ACUTE GENERALISED EXANTHEMATOUS PUSTULOSIS [None]
  - LYMPHOCYTE STIMULATION TEST POSITIVE [None]
